FAERS Safety Report 7674601-1 (Version None)
Quarter: 2011Q3

REPORT INFORMATION
  Report Type: 
  Country: None (occurrence: None)
  Receive Date: 20110810
  Receipt Date: 20110804
  Transmission Date: 20111222
  Serious: Yes (Hospitalization)
  Sender: FDA-Public Use
  Company Number: IT-ROCHE-792261

PATIENT
  Sex: Male

DRUGS (5)
  1. KEPPRA [Suspect]
     Dosage: FREQUENCY: DAILY
     Route: 048
     Dates: start: 20110101, end: 20110624
  2. RAMIPRIL [Concomitant]
  3. PLAVIX [Concomitant]
  4. OMEPRAZOLE [Suspect]
     Indication: PROPHYLAXIS
     Dosage: FREQUENCY: DAILY
     Route: 048
     Dates: start: 20110101, end: 20110726
  5. CLONAZEPAM [Suspect]
     Route: 048
     Dates: start: 20110101

REACTIONS (5)
  - SKIN EXFOLIATION [None]
  - HYPERTRANSAMINASAEMIA [None]
  - PRURITUS [None]
  - MUCOSAL INFLAMMATION [None]
  - CONJUNCTIVITIS [None]
